FAERS Safety Report 17315313 (Version 2)
Quarter: 2020Q1

REPORT INFORMATION
  Report Type: Spontaneous
  Country: US (occurrence: US)
  Receive Date: 20200124
  Receipt Date: 20200212
  Transmission Date: 20200409
  Serious: No
  Sender: FDA-Public Use
  Company Number: US-VERTEX PHARMACEUTICALS-2020-000888

PATIENT
  Sex: Male
  Weight: 76 kg

DRUGS (1)
  1. TRIKAFTA [Suspect]
     Active Substance: ELEXACAFTOR\IVACAFTOR\TEZACAFTOR
     Indication: CYSTIC FIBROSIS
     Dosage: 100 MG ELEXCAFTOR, 50 MG TEZACAFTOR, 75 MG IVACAFTOR AND 150 MG IVACAFTOR, FREQUENCY UNSPECIFIED
     Route: 048
     Dates: start: 20191121

REACTIONS (1)
  - Nephrolithiasis [Recovered/Resolved]
